FAERS Safety Report 7679356-2 (Version None)
Quarter: 2011Q3

REPORT INFORMATION
  Report Type: 
  Country: None (occurrence: None)
  Receive Date: 20110812
  Receipt Date: 20110729
  Transmission Date: 20111222
  Serious: Yes (Other)
  Sender: FDA-Public Use
  Company Number: PHHY2011US46561

PATIENT
  Sex: Female

DRUGS (2)
  1. EXFORGE [Suspect]
     Dosage: 320 MG VALS AND 5 MG AMLO
  2. LASIX [Concomitant]

REACTIONS (3)
  - HYPOTENSION [None]
  - TRANSIENT ISCHAEMIC ATTACK [None]
  - LOSS OF CONSCIOUSNESS [None]
